FAERS Safety Report 11585382 (Version 3)
Quarter: 2015Q4

REPORT INFORMATION
  Report Type: Spontaneous
  Country: CH (occurrence: DE)
  Receive Date: 20151001
  Receipt Date: 20151109
  Transmission Date: 20160304
  Serious: Yes (Other)
  Sender: FDA-Public Use
  Company Number: CH-LPDUSPRD-20150764

PATIENT
  Age: 28 Year
  Sex: Female
  Weight: 81 kg

DRUGS (2)
  1. FERINJECT [Suspect]
     Active Substance: FERRIC CARBOXYMALTOSE
     Dosage: 500 MG IN 250 ML
     Route: 041
     Dates: start: 20150601, end: 20150601
  2. SYMBICORT [Concomitant]
     Active Substance: BUDESONIDE\FORMOTEROL FUMARATE DIHYDRATE
     Dosage: 2 IN 1 D
     Route: 055

REACTIONS (17)
  - Cough [Unknown]
  - Angioedema [Unknown]
  - Hypotension [Unknown]
  - Flushing [Unknown]
  - Hyperventilation [Unknown]
  - Urticaria [Unknown]
  - Oedema mucosal [Unknown]
  - Pruritus [Unknown]
  - Respiratory distress [Unknown]
  - Anxiety [Unknown]
  - Wheezing [Unknown]
  - Bronchospasm [Unknown]
  - Feeling cold [Unknown]
  - Dyspnoea [Unknown]
  - Nausea [Unknown]
  - Tachycardia [Unknown]
  - Restlessness [Unknown]

NARRATIVE: CASE EVENT DATE: 20150601
